FAERS Safety Report 11984374 (Version 1)
Quarter: 2016Q1

REPORT INFORMATION
  Report Type: Spontaneous
  Country: US (occurrence: US)
  Receive Date: 20160201
  Receipt Date: 20160201
  Transmission Date: 20160526
  Serious: No
  Sender: FDA-Public Use
  Company Number: US-KADMON PHARMACEUTICALS, LLC-KAD201507-002306

PATIENT
  Age: 55 Year
  Sex: Male
  Weight: 84.82 kg

DRUGS (3)
  1. FISH OIL [Concomitant]
     Active Substance: FISH OIL
  2. VIEKIRA PAK [Suspect]
     Active Substance: DASABUVIR\OMBITASVIR\PARITAPREVIR\RITONAVIR
     Indication: HEPATITIS C
     Dosage: 3 TABLETS IN AM, AND 1 TABLET IN PM (1 IN 12 HR)
     Route: 048
     Dates: start: 20150621
  3. RIBAVIRIN. [Suspect]
     Active Substance: RIBAVIRIN
     Dates: start: 20150621

REACTIONS (5)
  - Tremor [Recovering/Resolving]
  - Asthenia [Recovering/Resolving]
  - Headache [Recovered/Resolved]
  - Incorrect dose administered [Recovering/Resolving]
  - Fatigue [Recovering/Resolving]

NARRATIVE: CASE EVENT DATE: 20150705
